FAERS Safety Report 6235826-5 (Version None)
Quarter: 2009Q2

REPORT INFORMATION
  Report Type: 
  Country: None (occurrence: None)
  Receive Date: 20090617
  Receipt Date: 20090617
  Transmission Date: 20091009
  Serious: No
  Sender: FDA-Public Use
  Company Number: None

PATIENT
  Age: 36 Year
  Sex: Female
  Weight: 74.3899 kg

DRUGS (1)
  1. ZICAM INTRANASAL SWABS [Suspect]
     Indication: NASOPHARYNGITIS
     Dosage: 1 SQUIRT 3 TIMES A DAY NASAL
     Dates: start: 20090201, end: 20090202

REACTIONS (2)
  - ANOSMIA [None]
  - RHINALGIA [None]
